FAERS Safety Report 11098471 (Version 2)
Quarter: 2015Q2

REPORT INFORMATION
  Report Type: Report from Study
  Country: RU (occurrence: RU)
  Receive Date: 20150507
  Receipt Date: 20150508
  Transmission Date: 20150821
  Serious: Yes (Death)
  Sender: FDA-Public Use
  Company Number: RU-AMGEN-RUSCT2015044236

PATIENT
  Age: 63 Year
  Sex: Male
  Weight: 77 kg

DRUGS (4)
  1. CARFILZOMIB [Suspect]
     Active Substance: CARFILZOMIB
     Indication: SMALL CELL LUNG CANCER
     Dosage: 56 MG/M2, PER CHEMO REGIM
     Route: 042
     Dates: start: 20150401, end: 20150430
  2. DEXAMETHASONE. [Concomitant]
     Active Substance: DEXAMETHASONE
     Indication: SMALL CELL LUNG CANCER
     Dosage: 8 MG, PER CHEMO REGIM
     Route: 042
     Dates: start: 20150401
  3. ETOPOSIDE. [Suspect]
     Active Substance: ETOPOSIDE
     Indication: SMALL CELL LUNG CANCER
     Dosage: 144 MG, PER CHEMO REGIM
     Route: 065
     Dates: start: 20150331, end: 20150423
  4. CARBOPLATIN. [Suspect]
     Active Substance: CARBOPLATIN
     Indication: SMALL CELL LUNG CANCER
     Dosage: 515 MG, PER CHEMO REGIM
     Route: 065
     Dates: start: 20150331, end: 20150421

REACTIONS (1)
  - Pulmonary haemorrhage [Fatal]

NARRATIVE: CASE EVENT DATE: 20150502
